FAERS Safety Report 20709641 (Version 3)
Quarter: 2023Q1

REPORT INFORMATION
  Report Type: Report from Study
  Country: US (occurrence: US)
  Receive Date: 20220414
  Receipt Date: 20230125
  Transmission Date: 20230418
  Serious: Yes (Death, Hospitalization, Other)
  Sender: FDA-Public Use
  Company Number: US-ABBVIE-22K-163-4220447-00

PATIENT
  Age: 71 Year
  Sex: Female

DRUGS (2)
  1. VENCLEXTA [Suspect]
     Active Substance: VENETOCLAX
     Indication: Acute myelomonocytic leukaemia
     Dosage: TAKE WITH A MEAL AND WATER AT THE SAME TIME EACH DAY
     Route: 048
     Dates: start: 202201
  2. VENCLEXTA [Suspect]
     Active Substance: VENETOCLAX
     Indication: Acute myelomonocytic leukaemia
     Dosage: TAKE WITH A MEAL AND WATER AT THE SAME TIME EACH DAY
     Route: 048

REACTIONS (6)
  - Death [Fatal]
  - Deafness unilateral [Unknown]
  - Pneumonia [Unknown]
  - Epistaxis [Unknown]
  - Off label use [Unknown]
  - Laboratory test abnormal [Unknown]

NARRATIVE: CASE EVENT DATE: 20220101
